FAERS Safety Report 5363130-6 (Version None)
Quarter: 2007Q2

REPORT INFORMATION
  Report Type: 
  Country: None (occurrence: None)
  Receive Date: 20070618
  Receipt Date: 20070605
  Transmission Date: 20071010
  Serious: Yes (Death, Life-Threatening, Hospitalization)
  Sender: FDA-Public Use
  Company Number: CLOF-10507

PATIENT
  Age: 19 Year
  Sex: Male
  Weight: 75.7 kg

DRUGS (44)
  1. CLOFARABINE. MFR: GENZYME [Suspect]
     Indication: ACUTE LYMPHOCYTIC LEUKAEMIA
     Dosage: 78 MG QD X 5 IV
     Route: 042
     Dates: start: 20070411, end: 20070415
  2. ETOPOSIDE [Suspect]
     Indication: ACUTE LYMPHOCYTIC LEUKAEMIA
     Dosage: 196 MG QD X 5 IV
     Route: 042
     Dates: start: 20070411, end: 20070415
  3. CYCLOPHOSPHAMIDE [Suspect]
     Indication: ACUTE LYMPHOCYTIC LEUKAEMIA
     Dosage: 860 MG QD X 5 IV
     Route: 042
     Dates: start: 20070411, end: 20070415
  4. ALLOPURINOL [Concomitant]
  5. AMPHETAMINE AND DEXTROAMPHETAMINE SALTS [Concomitant]
  6. DAPSONE [Concomitant]
  7. DOCUSATE [Concomitant]
  8. ESCITALOPRAM OXALATE [Concomitant]
  9. LABETALOL HCL [Concomitant]
  10. RANITIDINE [Concomitant]
  11. MAGNESIUM HYDROXIDE TAB [Concomitant]
  12. CALCIUM CARBONATE [Concomitant]
  13. LANSOPRAZOLE [Concomitant]
  14. MAGNESIUM SULFATE [Concomitant]
  15. MESNA [Concomitant]
  16. SCOPOLAMINE [Concomitant]
  17. DIPHENHYDRAMINE HCL [Concomitant]
  18. METOCLOPRAMIDE [Concomitant]
  19. POLYETHYLENE GLYCOL [Concomitant]
  20. ZOLPIDEM [Concomitant]
  21. AMLODIPINE [Concomitant]
  22. AMLODIPINE [Concomitant]
  23. DAPSONE [Concomitant]
  24. FILGRASTIM [Concomitant]
  25. FLUCONAZOLE [Concomitant]
  26. HEPARIN [Concomitant]
  27. HYDROMORPHONE HCL [Concomitant]
  28. MULTIVITAMINS WITH MINERALS [Concomitant]
  29. ONDANSETRON [Concomitant]
  30. OXYCODONE HCL [Concomitant]
  31. ACYCLOVIR [Concomitant]
  32. CEFTAZIDIME [Concomitant]
  33. SELENIOUS ACID [Concomitant]
  34. URSODIOL [Concomitant]
  35. ESOMEPRAZOLE MAGNESIUM [Concomitant]
  36. CENTAMICIN [Concomitant]
  37. HALOPERIDOL [Concomitant]
  38. LEVETIRACETAM [Concomitant]
  39. LORAZEPAM [Concomitant]
  40. MEROPENEM [Concomitant]
  41. PROPOFOL [Concomitant]
  42. PROPRANOLOL [Concomitant]
  43. SCOPOLAMINE [Concomitant]
  44. TIGECYCLINE [Concomitant]

REACTIONS (71)
  - AGITATION [None]
  - ALANINE AMINOTRANSFERASE INCREASED [None]
  - APLASIA [None]
  - ASPERGILLOSIS [None]
  - ATELECTASIS [None]
  - BLOOD ALKALINE PHOSPHATASE INCREASED [None]
  - BLOOD BICARBONATE INCREASED [None]
  - BLOOD CALCIUM DECREASED [None]
  - BLOOD CHLORIDE DECREASED [None]
  - BLOOD CHLORIDE INCREASED [None]
  - BLOOD CULTURE POSITIVE [None]
  - BLOOD MAGNESIUM DECREASED [None]
  - BLOOD MAGNESIUM INCREASED [None]
  - BLOOD OSMOLARITY INCREASED [None]
  - BLOOD PHOSPHORUS DECREASED [None]
  - BLOOD PHOSPHORUS INCREASED [None]
  - BLOOD POTASSIUM DECREASED [None]
  - BLOOD SODIUM DECREASED [None]
  - BLOOD UREA INCREASED [None]
  - BONE MARROW FAILURE [None]
  - BRAIN OEDEMA [None]
  - BRONCHOPULMONARY ASPERGILLOSIS [None]
  - CALCIUM IONISED DECREASED [None]
  - CARBON DIOXIDE INCREASED [None]
  - CARDIOMEGALY [None]
  - CHOLELITHIASIS [None]
  - CNS VENTRICULITIS [None]
  - COAGULOPATHY [None]
  - CONVULSION [None]
  - DEPRESSED LEVEL OF CONSCIOUSNESS [None]
  - DYSPNOEA [None]
  - ENCEPHALOPATHY [None]
  - FALL [None]
  - FLUID OVERLOAD [None]
  - GAMMA-GLUTAMYLTRANSFERASE INCREASED [None]
  - HAEMATOCHEZIA [None]
  - HAEMATOCRIT DECREASED [None]
  - HAEMOGLOBIN DECREASED [None]
  - HEADACHE [None]
  - HYDROCEPHALUS [None]
  - HYPERBILIRUBINAEMIA [None]
  - HYPERNATRAEMIA [None]
  - HYPOXIA [None]
  - INFECTION [None]
  - INTRACRANIAL PRESSURE INCREASED [None]
  - LOBAR PNEUMONIA [None]
  - LUNG DISORDER [None]
  - LUNG NEOPLASM [None]
  - MASTOIDITIS [None]
  - MENINGITIS [None]
  - MENINGITIS BACTERIAL [None]
  - MENTAL STATUS CHANGES [None]
  - MICROCOCCUS INFECTION [None]
  - NERVOUS SYSTEM DISORDER [None]
  - NEUTROPENIA [None]
  - ORAL DISCHARGE [None]
  - PANCYTOPENIA [None]
  - PEAU D'ORANGE [None]
  - PLATELET COUNT DECREASED [None]
  - PLEURAL EFFUSION [None]
  - POSTURING [None]
  - PULMONARY OEDEMA [None]
  - PYREXIA [None]
  - RESPIRATORY DISTRESS [None]
  - RESPIRATORY RATE INCREASED [None]
  - RHINORRHOEA [None]
  - SINUS DISORDER [None]
  - STAPHYLOCOCCAL INFECTION [None]
  - TACHYPNOEA [None]
  - VENTRICULAR TACHYCARDIA [None]
  - WHITE BLOOD CELL COUNT DECREASED [None]
